FAERS Safety Report 19941655 (Version 2)
Quarter: 2022Q1

REPORT INFORMATION
  Report Type: Report from Study
  Country: JP (occurrence: JP)
  Receive Date: 20211012
  Receipt Date: 20220124
  Transmission Date: 20220423
  Serious: Yes (Hospitalization, Other)
  Sender: FDA-Public Use
  Company Number: JP-ALXN-A201816457

PATIENT
  Age: 4 Decade
  Sex: Female

DRUGS (3)
  1. SOLIRIS [Suspect]
     Active Substance: ECULIZUMAB
     Dosage: 1200 MG, Q2W
     Route: 042
     Dates: start: 20181102
  2. SOLIRIS [Suspect]
     Active Substance: ECULIZUMAB
     Indication: Myasthenia gravis
     Dosage: 900 MG, QW
     Route: 042
     Dates: start: 20181005, end: 20181026
  3. SOLIRIS [Suspect]
     Active Substance: ECULIZUMAB
     Dosage: UNK UNK, Q2W
     Route: 042
     Dates: start: 20210922

REACTIONS (3)
  - Gastroenteritis Escherichia coli [Recovered/Resolved]
  - Physical deconditioning [Unknown]
  - Pruritus [Not Recovered/Not Resolved]

NARRATIVE: CASE EVENT DATE: 20181101
